FAERS Safety Report 12284435 (Version 3)
Quarter: 2016Q2

REPORT INFORMATION
  Report Type: Spontaneous
  Country: JP (occurrence: JP)
  Receive Date: 20160420
  Receipt Date: 20160613
  Transmission Date: 20160815
  Serious: Yes (Death, Life-Threatening)
  Sender: FDA-Public Use
  Company Number: JP-ROCHE-1742314

PATIENT
  Age: 74 Year
  Sex: Male
  Weight: 55 kg

DRUGS (8)
  1. TS-1 [Concomitant]
     Active Substance: GIMERACIL\OTERACIL\TEGAFUR
     Indication: COLON CANCER
     Route: 048
     Dates: start: 20150708
  2. ACARBOSE. [Concomitant]
     Active Substance: ACARBOSE
     Route: 048
  3. TS-1 [Concomitant]
     Active Substance: GIMERACIL\OTERACIL\TEGAFUR
     Indication: COLON CANCER
     Route: 048
     Dates: start: 20150609, end: 20150707
  4. ELPLAT [Concomitant]
     Active Substance: OXALIPLATIN
     Indication: COLON CANCER
     Route: 041
     Dates: start: 20150609
  5. OLMETEC [Concomitant]
     Active Substance: OLMESARTAN MEDOXOMIL
     Route: 048
  6. AVASTIN [Suspect]
     Active Substance: BEVACIZUMAB
     Indication: COLON CANCER
     Dosage: DOSAGE IS UNCERTAIN.
     Route: 041
     Dates: start: 20150609, end: 20160323
  7. ADALAT CC [Concomitant]
     Active Substance: NIFEDIPINE
     Route: 048
  8. TULOBUTEROL [Concomitant]
     Active Substance: TULOBUTEROL
     Route: 062

REACTIONS (2)
  - Gastric varices [Fatal]
  - Shock haemorrhagic [Fatal]

NARRATIVE: CASE EVENT DATE: 20160407
